FAERS Safety Report 25709345 (Version 1)
Quarter: 2025Q3

REPORT INFORMATION
  Report Type: Spontaneous
  Country: CH (occurrence: CH)
  Receive Date: 20250821
  Receipt Date: 20250821
  Transmission Date: 20251021
  Serious: Yes (Hospitalization)
  Sender: NOVARTIS
  Company Number: None

PATIENT
  Age: 62 Year
  Sex: Male
  Weight: 54.55 kg

DRUGS (19)
  1. MYFORTIC [Suspect]
     Active Substance: MYCOPHENOLATE SODIUM
     Indication: Product used for unknown indication
     Dosage: 720 MG, Q12H
     Route: 065
     Dates: start: 20250117, end: 20250710
  2. MYFORTIC [Suspect]
     Active Substance: MYCOPHENOLATE SODIUM
     Dosage: 360 MG, Q6H
     Route: 065
     Dates: start: 20250711, end: 20250717
  3. MYFORTIC [Suspect]
     Active Substance: MYCOPHENOLATE SODIUM
     Dosage: 540 MG, Q12H
     Route: 065
     Dates: start: 20250718
  4. VALGANCICLOVIR [Suspect]
     Active Substance: VALGANCICLOVIR
     Indication: Product used for unknown indication
     Dosage: 450 MG, Q12H
     Route: 065
     Dates: start: 20250107, end: 20250613
  5. VALGANCICLOVIR [Suspect]
     Active Substance: VALGANCICLOVIR
     Dosage: 450 MG, QD
     Route: 065
     Dates: start: 20250614, end: 20250704
  6. VALGANCICLOVIR [Suspect]
     Active Substance: VALGANCICLOVIR
     Route: 065
     Dates: start: 20250705, end: 20250707
  7. VALGANCICLOVIR [Suspect]
     Active Substance: VALGANCICLOVIR
     Dosage: 450 MG, QD
     Route: 065
     Dates: start: 20250708, end: 20250714
  8. ISAVUCONAZOLE [Suspect]
     Active Substance: ISAVUCONAZOLE
     Indication: Product used for unknown indication
     Dosage: 200 MG, QD
     Route: 065
     Dates: start: 20250326, end: 20250710
  9. PROGRAF [Suspect]
     Active Substance: TACROLIMUS
     Indication: Product used for unknown indication
     Dosage: 6 MG, Q12H
     Route: 065
     Dates: start: 20241230, end: 20250115
  10. PROGRAF [Suspect]
     Active Substance: TACROLIMUS
     Dosage: 3 MG, Q12H
     Route: 065
     Dates: start: 20250116, end: 20250119
  11. PROGRAF [Suspect]
     Active Substance: TACROLIMUS
     Dosage: 4 MG, Q12H
     Route: 065
     Dates: start: 20250120, end: 20250404
  12. PROGRAF [Suspect]
     Active Substance: TACROLIMUS
     Dosage: 2.4 MG, Q12H
     Route: 065
     Dates: start: 20250408, end: 20250410
  13. PROGRAF [Suspect]
     Active Substance: TACROLIMUS
     Dosage: 2.6 MG, Q12H
     Route: 065
     Dates: start: 20250411, end: 20250507
  14. PROGRAF [Suspect]
     Active Substance: TACROLIMUS
     Dosage: 2.4 MG, Q12H
     Route: 065
     Dates: start: 20250508, end: 20250613
  15. PROGRAF [Suspect]
     Active Substance: TACROLIMUS
     Dosage: 2 MG, Q12H
     Route: 065
     Dates: start: 20250614, end: 20250707
  16. PROGRAF [Suspect]
     Active Substance: TACROLIMUS
     Dosage: 2.2 MG, Q12H
     Route: 065
     Dates: start: 20250708
  17. ATOVAQUONE [Concomitant]
     Active Substance: ATOVAQUONE
     Indication: Product used for unknown indication
     Dosage: 1500 MG, QD
     Route: 065
     Dates: start: 20241230
  18. PREDNISONE [Concomitant]
     Active Substance: PREDNISONE
     Indication: Product used for unknown indication
     Dosage: 30 MG, QD
     Route: 065
     Dates: start: 20241230, end: 20250506
  19. PREDNISONE [Concomitant]
     Active Substance: PREDNISONE
     Dosage: 15 MG, QD
     Route: 065
     Dates: start: 20250507

REACTIONS (3)
  - Acute kidney injury [Recovered/Resolved]
  - Acute kidney injury [Recovering/Resolving]
  - Acute kidney injury [Recovering/Resolving]

NARRATIVE: CASE EVENT DATE: 20250115
